FAERS Safety Report 16430858 (Version 1)
Quarter: 2019Q3

REPORT INFORMATION
  Report Type: Spontaneous
  Country: US (occurrence: US)
  Receive Date: 20190613
  Receipt Date: 20190613
  Transmission Date: 20191004
  Serious: Yes (Hospitalization)
  Sender: FDA-Public Use
  Company Number: None

PATIENT
  Age: 30 Year
  Sex: Female
  Weight: 48.6 kg

DRUGS (1)
  1. WILATE - VON WILLEBRAND FACTOR/COAGULATION FACTOR VIII COMPLEX (HUMAN) [Suspect]
     Active Substance: HUMAN COAGULATION FACTOR VIII/VON WILLEBRAND FACTOR COMPLEX
     Indication: VON WILLEBRAND^S DISEASE
     Dosage: ?          OTHER FREQUENCY:PRE-PROCEDURE;?
     Route: 042
     Dates: start: 20190613, end: 20190613

REACTIONS (5)
  - Erythema [None]
  - Musculoskeletal stiffness [None]
  - Skin discolouration [None]
  - Retching [None]
  - Dizziness [None]

NARRATIVE: CASE EVENT DATE: 20190613
